FAERS Safety Report 7713537-4 (Version None)
Quarter: 2011Q3

REPORT INFORMATION
  Report Type: 
  Country: None (occurrence: None)
  Receive Date: 20110826
  Receipt Date: 20110818
  Transmission Date: 20111222
  Serious: Yes (Other)
  Sender: FDA-Public Use
  Company Number: BR-PFIZER INC-2011186931

PATIENT
  Age: 41 Year
  Sex: Female

DRUGS (4)
  1. PRISTIQ [Suspect]
     Indication: LIBIDO DECREASED
  2. PRISTIQ [Suspect]
     Indication: SOCIAL PHOBIA
  3. PRISTIQ [Suspect]
     Indication: GENERALISED ANXIETY DISORDER
  4. PRISTIQ [Suspect]
     Indication: DEPRESSION
     Dosage: 50 MG, 1X/DAY
     Route: 048

REACTIONS (9)
  - OBSESSIVE-COMPULSIVE DISORDER [None]
  - SUICIDAL IDEATION [None]
  - MALAISE [None]
  - DIZZINESS [None]
  - MANIA [None]
  - LIBIDO DECREASED [None]
  - DRUG WITHDRAWAL SYNDROME [None]
  - ANXIETY [None]
  - FEELING OF DESPAIR [None]
